FAERS Safety Report 22000244 (Version 1)
Quarter: 2023Q1

REPORT INFORMATION
  Report Type: Spontaneous
  Country: US (occurrence: US)
  Receive Date: 20230216
  Receipt Date: 20230216
  Transmission Date: 20230418
  Serious: Yes (Death, Hospitalization)
  Sender: FDA-Public Use
  Company Number: US-drreddys-LIT/USA/23/0161175

PATIENT
  Age: 86 Year
  Sex: Male

DRUGS (4)
  1. CIPROFLOXACIN [Suspect]
     Active Substance: CIPROFLOXACIN
     Indication: Mycobacterium chelonae infection
  2. LINEZOLID [Suspect]
     Active Substance: LINEZOLID
     Indication: Mycobacterium chelonae infection
  3. AZITHROMYCIN [Suspect]
     Active Substance: AZITHROMYCIN
     Indication: Mycobacterium chelonae infection
  4. TOBRAMYCIN [Suspect]
     Active Substance: TOBRAMYCIN
     Indication: Mycobacterium chelonae infection
     Route: 042

REACTIONS (7)
  - Death [Fatal]
  - Osteomyelitis [Unknown]
  - Abscess limb [Unknown]
  - Acute myocardial infarction [Unknown]
  - Lactic acidosis [Unknown]
  - Acute kidney injury [Unknown]
  - Drug ineffective for unapproved indication [Unknown]
